FAERS Safety Report 8984215 (Version 1)
Quarter: 2012Q4

REPORT INFORMATION
  Report Type: 
  Country: BR (occurrence: BR)
  Receive Date: 20121226
  Receipt Date: 20121226
  Transmission Date: 20130627
  Serious: Yes (Other)
  Sender: FDA-Public Use
  Company Number: BR-PFIZER INC-2012307612

PATIENT
  Age: 36 Year
  Sex: Female

DRUGS (6)
  1. LYRICA [Suspect]
     Indication: CERVICAL PAIN
     Dosage: 75mg daily
     Route: 048
     Dates: end: 2012
  2. LYRICA [Suspect]
     Indication: PAIN IN ARM
     Dosage: 150 mg at night
     Route: 048
     Dates: start: 20120808
  3. LYRICA [Suspect]
     Indication: SHOULDER PAIN
  4. LYRICA [Suspect]
     Indication: ANXIETY
  5. LYRICA [Suspect]
     Indication: HEADACHE
  6. YASMIN [Concomitant]
     Indication: CONTRACEPTION

REACTIONS (5)
  - Road traffic accident [Unknown]
  - Somnolence [Unknown]
  - Drug ineffective [Unknown]
  - Malaise [Unknown]
  - Wrong technique in drug usage process [Recovered/Resolved]
